FAERS Safety Report 10347888 (Version 1)
Quarter: 2014Q3

REPORT INFORMATION
  Report Type: Spontaneous
  Country: US (occurrence: US)
  Receive Date: 20140729
  Receipt Date: 20140729
  Transmission Date: 20150326
  Serious: Yes (Other)
  Sender: FDA-Public Use
  Company Number: US-ACTAVIS-2014-16182

PATIENT
  Age: 82 Year
  Sex: Male

DRUGS (6)
  1. INSULIN DETEMIR [Interacting]
     Active Substance: INSULIN DETEMIR
     Indication: TYPE 2 DIABETES MELLITUS
     Dosage: UNK, QPM; 32 UNITS
     Route: 065
  2. OMEPRAZOLE (WATSON LABORATORIES) [Interacting]
     Active Substance: OMEPRAZOLE
     Indication: HELICOBACTER INFECTION
     Dosage: 20 MG, BID
     Route: 065
  3. AMOXICILLIN. [Interacting]
     Active Substance: AMOXICILLIN
     Indication: HELICOBACTER INFECTION
     Dosage: 500 MG, BID
     Route: 065
  4. INSULIN DETEMIR [Interacting]
     Active Substance: INSULIN DETEMIR
     Dosage: UNK, QPM; 15 UNITS
     Route: 065
  5. INSULIN ASPART [Concomitant]
     Active Substance: INSULIN ASPART
     Indication: TYPE 2 DIABETES MELLITUS
     Dosage: UNK, TID (WITH MEALS)
     Route: 065
  6. CLARITHROMYCIN (UNKNOWN) [Suspect]
     Active Substance: CLARITHROMYCIN
     Indication: HELICOBACTER INFECTION
     Dosage: 500 MG, BID
     Route: 065

REACTIONS (2)
  - Drug interaction [Recovered/Resolved]
  - Hypoglycaemia [Recovered/Resolved]
